FAERS Safety Report 15941681 (Version 1)
Quarter: 2019Q1

REPORT INFORMATION
  Report Type: Spontaneous
  Country: US (occurrence: US)
  Receive Date: 20190209
  Receipt Date: 20190209
  Transmission Date: 20190417
  Serious: Yes (Other)
  Sender: FDA-Public Use
  Company Number: None

PATIENT
  Age: 25 Year
  Sex: Male
  Weight: 92.25 kg

DRUGS (2)
  1. FINASTERIDE. [Suspect]
     Active Substance: FINASTERIDE
     Indication: ANDROGENETIC ALOPECIA
     Dosage: ?          QUANTITY:1 TABLET(S);?
     Route: 048
     Dates: start: 20180602, end: 20180707
  2. CENTRUM MULTIVITAMIN FOR MEN [Concomitant]

REACTIONS (4)
  - Depression [None]
  - Libido decreased [None]
  - Sleep disorder [None]
  - Erectile dysfunction [None]

NARRATIVE: CASE EVENT DATE: 20180707
